FAERS Safety Report 23749629 (Version 2)
Quarter: 2024Q2

REPORT INFORMATION
  Report Type: Report from Study
  Country: GB (occurrence: GB)
  Receive Date: 20240416
  Receipt Date: 20240620
  Transmission Date: 20240715
  Serious: Yes (Other)
  Sender: FDA-Public Use
  Company Number: GB-002147023-NVSC2024GB080078

PATIENT
  Sex: Female

DRUGS (1)
  1. COSENTYX [Suspect]
     Active Substance: SECUKINUMAB
     Indication: Ankylosing spondylitis
     Dosage: 150 MG, 1 ML SOLUTION FOR INJECTION PREFILLED SYRINGE 2 DISPOSABLE INJECTION
     Route: 058
     Dates: start: 20240315

REACTIONS (1)
  - Cataract [Not Recovered/Not Resolved]
